FAERS Safety Report 9020723 (Version 1)
Quarter: 2013Q1

REPORT INFORMATION
  Report Type: Spontaneous
  Country: US (occurrence: US)
  Receive Date: 20130119
  Receipt Date: 20130119
  Transmission Date: 20140127
  Serious: No
  Sender: FDA-Public Use
  Company Number: US-ALLERGAN-1205780US

PATIENT
  Age: 62 None
  Sex: Female
  Weight: 124.72 kg

DRUGS (7)
  1. BOTOX? [Suspect]
     Indication: MUSCLE SPASTICITY
     Dosage: 50 UNITS, SINGLE
     Route: 030
     Dates: start: 20120416, end: 20120416
  2. BOTOX? [Suspect]
     Dosage: 100 UNK, SINGLE
     Dates: start: 20110926, end: 20110926
  3. BOTOX? [Suspect]
     Dosage: 50 UNK, UNK
     Dates: start: 20120103, end: 20120103
  4. CRESTOR                            /01588601/ [Concomitant]
     Indication: PRODUCT USED FOR UNKNOWN INDICATION
  5. LASIX                              /00032601/ [Concomitant]
     Indication: PRODUCT USED FOR UNKNOWN INDICATION
     Dosage: 40 MG, UNK
  6. ASA [Concomitant]
     Indication: CEREBROVASCULAR ACCIDENT
     Dosage: 81 MG, UNK
  7. MULTIVITAMIN                       /00097801/ [Concomitant]
     Indication: PRODUCT USED FOR UNKNOWN INDICATION

REACTIONS (5)
  - Musculoskeletal disorder [Not Recovered/Not Resolved]
  - Gait disturbance [Not Recovered/Not Resolved]
  - Speech disorder [Not Recovered/Not Resolved]
  - Fatigue [Recovering/Resolving]
  - Muscular weakness [Not Recovered/Not Resolved]
